FAERS Safety Report 13941362 (Version 1)
Quarter: 2017Q3

REPORT INFORMATION
  Report Type: Spontaneous
  Country: CN (occurrence: CN)
  Receive Date: 20170906
  Receipt Date: 20170906
  Transmission Date: 20171127
  Serious: Yes (Hospitalization)
  Sender: FDA-Public Use
  Company Number: CN-BAYER-2017-166564

PATIENT
  Age: 58 Year
  Sex: Female
  Weight: 43 kg

DRUGS (1)
  1. ULTRAVIST [Suspect]
     Active Substance: IOPROMIDE
     Indication: COMPUTERISED TOMOGRAM
     Dosage: UNK
     Route: 040
     Dates: start: 20170828, end: 20170828

REACTIONS (14)
  - Pulse absent [None]
  - Dyspnoea [None]
  - Pneumothorax [None]
  - Oxygen saturation decreased [None]
  - Syncope [None]
  - Heart rate irregular [None]
  - Subcutaneous emphysema [None]
  - Heart rate increased [None]
  - Blister [None]
  - Blood pressure immeasurable [None]
  - Blood pressure decreased [None]
  - Respiratory disorder [None]
  - Cyanosis [None]
  - Loss of consciousness [None]

NARRATIVE: CASE EVENT DATE: 20170828
